FAERS Safety Report 8941961 (Version 1)
Quarter: 2012Q4

REPORT INFORMATION
  Report Type: 
  Country: BR (occurrence: BR)
  Receive Date: 20121203
  Receipt Date: 20121203
  Transmission Date: 20130627
  Serious: Yes (Hospitalization, Other)
  Sender: FDA-Public Use
  Company Number: BR-ABBOTT-12P-020-1012783-00

PATIENT
  Age: 47 None
  Sex: Female
  Weight: 49 kg

DRUGS (3)
  1. SYNTHROID [Suspect]
     Indication: HYPERTHYROIDISM
     Route: 048
  2. DICETEL [Suspect]
     Indication: SHORT-BOWEL SYNDROME
     Route: 048
  3. DICETEL [Suspect]
     Indication: DIARRHOEA

REACTIONS (7)
  - Rectosigmoid cancer [Recovered/Resolved]
  - Gastrointestinal disorder [Recovered/Resolved]
  - Myasthenic syndrome [Recovering/Resolving]
  - Ileus [Recovered/Resolved]
  - Insomnia [Not Recovered/Not Resolved]
  - Diarrhoea [Recovered/Resolved]
  - Abdominal pain [Recovered/Resolved]
